FAERS Safety Report 4293457-0 (Version None)
Quarter: 2004Q1

REPORT INFORMATION
  Report Type: 
  Country: None (occurrence: None)
  Receive Date: 20040126
  Receipt Date: 20031105
  Transmission Date: 20041129
  Serious: No
  Sender: FDA-Public Use
  Company Number: USA031151842

PATIENT
  Age: 56 Year
  Sex: Female
  Weight: 77 kg

DRUGS (6)
  1. FORTEO [Suspect]
     Indication: OSTEOPOROSIS
     Dates: start: 20031023
  2. SYNTHROID [Concomitant]
  3. COUMADIN [Concomitant]
  4. LASIX [Concomitant]
  5. PREVACID [Concomitant]
  6. PRAVACHOL [Concomitant]

REACTIONS (1)
  - HYPOAESTHESIA [None]
